FAERS Safety Report 5251720-0 (Version None)
Quarter: 2007Q1

REPORT INFORMATION
  Report Type: 
  Country: None (occurrence: None)
  Receive Date: 20070228
  Receipt Date: 20061019
  Transmission Date: 20070707
  Serious: No
  Sender: FDA-Public Use
  Company Number: US-GLAXOSMITHKLINE-A0624230A

PATIENT
  Age: 38 Year
  Sex: Female

DRUGS (3)
  1. LAMICTAL [Suspect]
     Indication: POSTPARTUM DEPRESSION
     Dosage: 25MG ALTERNATE DAYS
     Route: 048
     Dates: start: 20061002
  2. REMERON [Concomitant]
  3. VITAMINS [Concomitant]

REACTIONS (1)
  - RASH [None]
